FAERS Safety Report 22238311 (Version 1)
Quarter: 2023Q2

REPORT INFORMATION
  Report Type: Spontaneous
  Country: US (occurrence: US)
  Receive Date: 20230421
  Receipt Date: 20230421
  Transmission Date: 20230722
  Serious: No
  Sender: FDA-Public Use
  Company Number: US-HETERO-HET2023US00918

PATIENT
  Sex: Female
  Weight: 113.38 kg

DRUGS (1)
  1. ATOVAQUONE [Suspect]
     Active Substance: ATOVAQUONE
     Indication: Pneumonia
     Dosage: EVERY DAY
     Route: 065

REACTIONS (6)
  - Recalled product administered [Unknown]
  - Illness [Unknown]
  - Laboratory test abnormal [Unknown]
  - Weight decreased [Unknown]
  - Infection [Unknown]
  - Diarrhoea [Unknown]
